FAERS Safety Report 23369869 (Version 1)
Quarter: 2024Q1

REPORT INFORMATION
  Report Type: Spontaneous
  Country: US (occurrence: US)
  Receive Date: 20240105
  Receipt Date: 20240105
  Transmission Date: 20240409
  Serious: Yes (Other)
  Sender: FDA-Public Use
  Company Number: US-VERTICAL PHARMACEUTICALS-2023ALO00120

PATIENT
  Sex: Female
  Weight: 58.967 kg

DRUGS (4)
  1. DHIVY [Suspect]
     Active Substance: CARBIDOPA\LEVODOPA
     Indication: Parkinson^s disease
     Dosage: 0.5 TABLET, 3X/DAY
     Dates: start: 2023, end: 2023
  2. DHIVY [Suspect]
     Active Substance: CARBIDOPA\LEVODOPA
     Dosage: 0.25 TABLET, 3X/DAY
     Dates: start: 2023
  3. AMANTADINE [Suspect]
     Active Substance: AMANTADINE
     Indication: Parkinson^s disease
  4. PRAMIPEXOLE [Suspect]
     Active Substance: PRAMIPEXOLE\PRAMIPEXOLE DIHYDROCHLORIDE
     Indication: Parkinson^s disease

REACTIONS (4)
  - Parkinson^s disease [Not Recovered/Not Resolved]
  - Dyskinesia [Unknown]
  - Drug ineffective [Not Recovered/Not Resolved]
  - Drug titration error [Unknown]

NARRATIVE: CASE EVENT DATE: 20230101
